FAERS Safety Report 7509829-4 (Version None)
Quarter: 2011Q2

REPORT INFORMATION
  Report Type: 
  Country: None (occurrence: None)
  Receive Date: 20110527
  Receipt Date: 20110520
  Transmission Date: 20111010
  Serious: Yes (Hospitalization)
  Sender: FDA-Public Use
  Company Number: A0929021A

PATIENT
  Age: 44 Year
  Sex: Male
  Weight: 73.8 kg

DRUGS (7)
  1. VELCADE [Suspect]
     Dates: start: 20110408, end: 20110505
  2. ZOMETA [Concomitant]
  3. METOPROLOL TARTRATE [Concomitant]
     Indication: ATRIAL FIBRILLATION
  4. FLUDARABINE PHOSPHATE [Suspect]
  5. MELPHALAN HYDROCHLORIDE [Suspect]
  6. CYCLOSPORINE [Suspect]
  7. MYCOPHENOLATE MOFETIL [Suspect]

REACTIONS (3)
  - BACK PAIN [None]
  - PYREXIA [None]
  - UPPER RESPIRATORY TRACT INFECTION [None]
